FAERS Safety Report 7131371 (Version 6)
Quarter: 2013Q2

REPORT INFORMATION
  Report Type: Report from Study
  Country: DE (occurrence: DE)
  Receive Date: 20090925
  Receipt Date: 20130503
  Transmission Date: 20140414
  Serious: Yes (Hospitalization)
  Sender: FDA-Public Use
  Company Number: DE-ABBOTT-09P-062-0597981-00

PATIENT
  Age: 43 Year
  Sex: Female
  Weight: 64 kg

DRUGS (3)
  1. HUMIRA [Suspect]
     Indication: CROHN^S DISEASE
     Dosage: 80 MG INDUCTION
     Route: 058
     Dates: start: 20090831
  2. HUMIRA [Suspect]
     Route: 058
  3. AZATHIOPRIN [Concomitant]
     Indication: CROHN^S DISEASE
     Dates: start: 20080710, end: 20100422

REACTIONS (4)
  - Intestinal obstruction [Recovered/Resolved]
  - Peritonitis [Recovered/Resolved]
  - Crohn^s disease [Recovered/Resolved]
  - Ileal stenosis [Recovered/Resolved]
